FAERS Safety Report 9439376 (Version 1)
Quarter: 2013Q3

REPORT INFORMATION
  Report Type: Spontaneous
  Country: US (occurrence: US)
  Receive Date: 20130805
  Receipt Date: 20130805
  Transmission Date: 20140515
  Serious: Yes (Hospitalization)
  Sender: FDA-Public Use
  Company Number: US-ROCHE-1255237

PATIENT
  Sex: Female

DRUGS (10)
  1. RITUXAN [Suspect]
     Indication: PRODUCT USED FOR UNKNOWN INDICATION
     Route: 065
  2. ENBREL [Suspect]
     Indication: PRODUCT USED FOR UNKNOWN INDICATION
     Route: 065
     Dates: start: 201004, end: 201104
  3. CYCLOPHOSPHAMIDE [Suspect]
     Indication: HEPATIC CANCER
     Route: 065
  4. DOXORUBICIN [Suspect]
     Indication: HEPATIC CANCER
     Route: 065
  5. VINCRISTINE [Suspect]
     Indication: HEPATIC CANCER
     Route: 065
  6. PREDNISONE [Suspect]
     Indication: HEPATIC CANCER
     Route: 065
  7. KERAFOAM [Suspect]
     Indication: PRODUCT USED FOR UNKNOWN INDICATION
     Route: 065
  8. RETIN A CREAM [Concomitant]
  9. LEVOTHYROXINE [Concomitant]
  10. CRESTOR [Concomitant]

REACTIONS (9)
  - Hepatic cancer stage IV [Recovered/Resolved]
  - Renal failure [Unknown]
  - B-cell lymphoma [Unknown]
  - Type 2 diabetes mellitus [Not Recovered/Not Resolved]
  - Neuropathy peripheral [Not Recovered/Not Resolved]
  - Coma [Unknown]
  - Kidney infection [Unknown]
  - Skin lesion [Unknown]
  - Skin ulcer [Unknown]
